FAERS Safety Report 9028456 (Version 1)
Quarter: 2013Q1

REPORT INFORMATION
  Report Type: Spontaneous
  Country: US (occurrence: US)
  Receive Date: 20130124
  Receipt Date: 20130124
  Transmission Date: 20140127
  Serious: Yes (Other)
  Sender: FDA-Public Use
  Company Number: PHHY2013US006454

PATIENT
  Age: 26 Year
  Sex: Female

DRUGS (11)
  1. FENTANYL [Suspect]
     Indication: LABOUR PAIN
     Dosage: 25 UG, ONCE/SINGLE
     Route: 008
  2. FENTANYL [Suspect]
     Indication: EPIDURAL ANALGESIA
  3. LIDOCAINE [Suspect]
     Indication: EPIDURAL TEST DOSE
     Dosage: 3 ML, UNK
     Route: 008
  4. LIDOCAINE [Suspect]
     Indication: LABOUR PAIN
  5. CEFAZOLIN [Suspect]
     Indication: INFECTION PROPHYLAXIS
     Dosage: 2 G, UNK
     Route: 042
  6. PROPOFOL [Suspect]
     Indication: GENERAL ANAESTHESIA
     Dosage: 125 MG, UNK
  7. SUCCINYLCHOLINE CHLORIDE [Suspect]
     Indication: GENERAL ANAESTHESIA
     Dosage: 100 MG, UNK
  8. BUPIVACAINE [Suspect]
     Indication: EPIDURAL ANALGESIA
     Dosage: 2.5 MG, ONCE/SINGLE
     Route: 008
  9. BUPIVACAINE [Suspect]
     Indication: LABOUR PAIN
  10. EPINEPHRINE [Suspect]
     Indication: EPIDURAL TEST DOSE
     Dosage: 15 UG, UNK
     Route: 008
  11. EPINEPHRINE [Suspect]
     Indication: LABOUR PAIN

REACTIONS (7)
  - Bradycardia foetal [Recovered/Resolved]
  - Premature separation of placenta [Unknown]
  - Uterine atony [Recovered/Resolved]
  - Procedural haemorrhage [Recovered/Resolved]
  - Uterine hypertonus [Recovered/Resolved]
  - Maternal exposure during pregnancy [Unknown]
  - Normal newborn [Unknown]
